FAERS Safety Report 15733210 (Version 1)
Quarter: 2018Q4

REPORT INFORMATION
  Report Type: Spontaneous
  Country: US (occurrence: US)
  Receive Date: 20181218
  Receipt Date: 20181218
  Transmission Date: 20190205
  Serious: Yes (Other)
  Sender: FDA-Public Use
  Company Number: US-ROCHE-2115553

PATIENT
  Age: 60 Year
  Sex: Female

DRUGS (10)
  1. ZOLOFT [Concomitant]
     Active Substance: SERTRALINE HYDROCHLORIDE
     Route: 065
  2. OMEPRAZOLE. [Concomitant]
     Active Substance: OMEPRAZOLE
     Route: 065
  3. SIMVASTATIN. [Concomitant]
     Active Substance: SIMVASTATIN
     Route: 065
  4. ESBRIET [Suspect]
     Active Substance: PIRFENIDONE
     Route: 048
     Dates: start: 20180330
  5. LOSARTAN. [Concomitant]
     Active Substance: LOSARTAN
     Route: 065
  6. METOLAZONE. [Concomitant]
     Active Substance: METOLAZONE
     Route: 065
  7. ESBRIET [Suspect]
     Active Substance: PIRFENIDONE
     Indication: IDIOPATHIC PULMONARY FIBROSIS
     Route: 048
     Dates: start: 20180329
  8. ESBRIET [Suspect]
     Active Substance: PIRFENIDONE
     Route: 048
     Dates: start: 20180401
  9. ASPIRIN. [Concomitant]
     Active Substance: ASPIRIN
     Route: 065
  10. ALLEGRA [Concomitant]
     Active Substance: FEXOFENADINE HYDROCHLORIDE
     Route: 065

REACTIONS (13)
  - Somnolence [Not Recovered/Not Resolved]
  - Rhinitis [Not Recovered/Not Resolved]
  - Lethargy [Not Recovered/Not Resolved]
  - Abdominal pain [Unknown]
  - Dizziness [Not Recovered/Not Resolved]
  - Hypokalaemia [Unknown]
  - Weight decreased [Unknown]
  - Rash [Unknown]
  - Decreased appetite [Not Recovered/Not Resolved]
  - Constipation [Unknown]
  - Hot flush [Unknown]
  - Fatigue [Not Recovered/Not Resolved]
  - Sneezing [Not Recovered/Not Resolved]

NARRATIVE: CASE EVENT DATE: 20180401
